FAERS Safety Report 17766118 (Version 4)
Quarter: 2021Q1

REPORT INFORMATION
  Report Type: Spontaneous
  Country: FR (occurrence: FR)
  Receive Date: 20200511
  Receipt Date: 20210108
  Transmission Date: 20210419
  Serious: Yes (Death, Other)
  Sender: FDA-Public Use
  Company Number: FR-BAYER-2020-043234

PATIENT
  Sex: Female

DRUGS (10)
  1. VITRAKVI [Suspect]
     Active Substance: LAROTRECTINIB
     Indication: METASTASES TO LIVER
  2. VITAMIN D [VITAMIN D NOS] [Concomitant]
     Active Substance: VITAMIN D NOS
  3. VITRAKVI [Suspect]
     Active Substance: LAROTRECTINIB
     Indication: SALIVARY GLAND ADENOMA
     Dosage: UNK
     Dates: start: 20190626, end: 202002
  4. VITRAKVI [Suspect]
     Active Substance: LAROTRECTINIB
     Indication: METASTASES TO LUNG
  5. INFLUENZA VACCINE [Concomitant]
     Active Substance: INFLUENZA VIRUS VACCINE
  6. VITRAKVI [Suspect]
     Active Substance: LAROTRECTINIB
     Indication: METASTASES TO LUNG
  7. VITRAKVI [Suspect]
     Active Substance: LAROTRECTINIB
     Indication: METASTASES TO BONE
  8. VITRAKVI [Suspect]
     Active Substance: LAROTRECTINIB
     Indication: METASTASES TO BONE
  9. VITRAKVI [Suspect]
     Active Substance: LAROTRECTINIB
     Indication: SALIVARY GLAND ADENOMA
     Dosage: UNK
     Dates: start: 202001
  10. VITRAKVI [Suspect]
     Active Substance: LAROTRECTINIB
     Indication: METASTASES TO LIVER

REACTIONS (10)
  - Salivary gland adenoma [None]
  - Metastases to bone [None]
  - Intentional product use issue [None]
  - Periarthritis [None]
  - Drug ineffective [None]
  - Respiratory failure [Fatal]
  - Metastases to lung [Fatal]
  - Spinal pain [Recovering/Resolving]
  - Product prescribing error [None]
  - Joint range of motion decreased [None]

NARRATIVE: CASE EVENT DATE: 20191220
